FAERS Safety Report 7688567-1 (Version None)
Quarter: 2011Q3

REPORT INFORMATION
  Report Type: 
  Country: None (occurrence: None)
  Receive Date: 20110817
  Receipt Date: 20110815
  Transmission Date: 20111222
  Serious: Yes (Hospitalization, Other)
  Sender: FDA-Public Use
  Company Number: CA-TEVA-296589USA

PATIENT
  Age: 66 Year
  Sex: Female

DRUGS (6)
  1. IMIPRAMINE [Concomitant]
  2. HALOPERIDOL [Concomitant]
     Indication: PARANOIA
  3. TRAZODONE HCL [Concomitant]
  4. TRAMADOL HCL [Concomitant]
  5. PAROXETINE HCL [Interacting]
     Dosage: 20 MILLIGRAM;
  6. MIRTAZAPINE [Suspect]
     Indication: PARANOIA
     Dosage: 15 MILLIGRAM;

REACTIONS (2)
  - SEROTONIN SYNDROME [None]
  - DRUG INTERACTION [None]
